FAERS Safety Report 5197106-9 (Version None)
Quarter: 2006Q4

REPORT INFORMATION
  Report Type: 
  Country: None (occurrence: None)
  Receive Date: 20061227
  Receipt Date: 20061212
  Transmission Date: 20070319
  Serious: Yes (Other)
  Sender: FDA-Public Use
  Company Number: 2006152845

PATIENT
  Sex: 0

DRUGS (1)
  1. NEURONTIN [Suspect]

REACTIONS (2)
  - DRUG INTOLERANCE [None]
  - LIVER DISORDER [None]
